FAERS Safety Report 4345751-2 (Version None)
Quarter: 2004Q2

REPORT INFORMATION
  Report Type: 
  Country: None (occurrence: None)
  Receive Date: 20040421
  Receipt Date: 20040406
  Transmission Date: 20050107
  Serious: Yes (Other)
  Sender: FDA-Public Use
  Company Number: PHFR2004GB01690

PATIENT

DRUGS (1)
  1. VISUDYNE [Suspect]
     Indication: MACULAR DEGENERATION

REACTIONS (1)
  - CHOLECYSTITIS ACUTE [None]
